FAERS Safety Report 23088123 (Version 1)
Quarter: 2023Q4

REPORT INFORMATION
  Report Type: Report from Study
  Country: CA (occurrence: CA)
  Receive Date: 20231020
  Receipt Date: 20231020
  Transmission Date: 20240110
  Serious: Yes (Other)
  Sender: FDA-Public Use
  Company Number: CA-ABBVIE-5453658

PATIENT

DRUGS (1)
  1. HUMIRA [Suspect]
     Active Substance: ADALIMUMAB
     Indication: Ankylosing spondylitis
     Route: 058

REACTIONS (7)
  - Uveitis [Unknown]
  - Arthralgia [Unknown]
  - Headache [Unknown]
  - Gait disturbance [Unknown]
  - Abdominal pain [Unknown]
  - Neck pain [Unknown]
  - Iritis [Unknown]
